FAERS Safety Report 4332551-2 (Version None)
Quarter: 2004Q1

REPORT INFORMATION
  Report Type: 
  Country: None (occurrence: None)
  Receive Date: 20040330
  Receipt Date: 20040318
  Transmission Date: 20041129
  Serious: Yes (Other)
  Sender: FDA-Public Use
  Company Number: DE-JNJFOC-20040304273

PATIENT
  Age: 81 Year
  Sex: Female

DRUGS (1)
  1. REMINYL [Suspect]
     Indication: DEMENTIA
     Dosage: ORAL
     Route: 048

REACTIONS (1)
  - TACHYARRHYTHMIA [None]
